FAERS Safety Report 7351238-5 (Version None)
Quarter: 2011Q1

REPORT INFORMATION
  Report Type: 
  Country: None (occurrence: None)
  Receive Date: 20110314
  Receipt Date: 20110309
  Transmission Date: 20110831
  Serious: Yes (Death)
  Sender: FDA-Public Use
  Company Number: US-ABBOTT-10P-163-0683868-00

PATIENT
  Sex: Male
  Weight: 163.44 kg

DRUGS (2)
  1. MERIDIA [Suspect]
     Indication: WEIGHT DECREASED
     Dates: start: 20090901
  2. THYROID TAB [Concomitant]
     Indication: THYROID DISORDER

REACTIONS (1)
  - HYPERTENSIVE HEART DISEASE [None]
